FAERS Safety Report 7309011-X (Version None)
Quarter: 2011Q1

REPORT INFORMATION
  Report Type: 
  Country: None (occurrence: None)
  Receive Date: 20110223
  Receipt Date: 20110121
  Transmission Date: 20110831
  Serious: Yes (Other)
  Sender: FDA-Public Use
  Company Number: US-BAYER-2011-016325

PATIENT
  Sex: Female
  Weight: 59.41 kg

DRUGS (7)
  1. YAZ [Suspect]
     Indication: OVARIAN CYST
     Dosage: 1 TAB / DAY
     Dates: start: 20030101, end: 20060101
  2. SYNTHROID [Concomitant]
     Dosage: UNK
     Dates: start: 20020101
  3. THYROID TAB [Concomitant]
     Dosage: UNK
     Dates: start: 20020101
  4. YAZ [Suspect]
     Indication: PREMENSTRUAL SYNDROME
  5. YASMIN [Suspect]
     Indication: OVARIAN CYST
     Dosage: 1 TAB / DAY
     Dates: start: 20030101, end: 20060101
  6. YASMIN [Suspect]
     Indication: PREMENSTRUAL SYNDROME
  7. IBUPROFEN [Concomitant]

REACTIONS (2)
  - ABDOMINAL PAIN [None]
  - CHOLECYSTITIS [None]
